FAERS Safety Report 6046452-5 (Version None)
Quarter: 2009Q1

REPORT INFORMATION
  Report Type: 
  Country: None (occurrence: None)
  Receive Date: 20090121
  Receipt Date: 20090121
  Transmission Date: 20090719
  Serious: Yes (Other)
  Sender: FDA-Public Use
  Company Number: None

PATIENT
  Age: 53 Year
  Sex: Male
  Weight: 74.3899 kg

DRUGS (1)
  1. LAMOTRIGINE [Suspect]
     Indication: BIPOLAR DISORDER
     Dosage: 2 DAILY PO
     Route: 048
     Dates: start: 20080901, end: 20081231

REACTIONS (2)
  - PRODUCT QUALITY ISSUE [None]
  - PRURITUS [None]
